FAERS Safety Report 4821615-2 (Version None)
Quarter: 2005Q4

REPORT INFORMATION
  Report Type: 
  Country: None (occurrence: None)
  Receive Date: 20051107
  Receipt Date: 20041223
  Transmission Date: 20060501
  Serious: No
  Sender: FDA-Public Use
  Company Number: US-MERCK-0412USA02899

PATIENT
  Age: 78 Year
  Sex: Female

DRUGS (10)
  1. VIOXX [Suspect]
     Indication: ARTHRITIS
     Route: 048
     Dates: start: 20030101, end: 20040930
  2. [THERAPY UNSPECIFIED] [Concomitant]
     Route: 065
  3. LEXAPRO [Concomitant]
     Route: 065
  4. SYNTHROID [Concomitant]
     Route: 065
  5. WELLBUTRIN [Concomitant]
     Route: 065
  6. LASIX [Concomitant]
     Route: 065
  7. ATENOLOL [Concomitant]
     Route: 065
  8. LIPITOR [Concomitant]
     Route: 065
  9. DIOVAN [Concomitant]
     Route: 065
  10. SEROQUEL [Concomitant]
     Route: 065

REACTIONS (2)
  - CHEST PAIN [None]
  - UNEVALUABLE EVENT [None]
